FAERS Safety Report 13580277 (Version 1)
Quarter: 2017Q2

REPORT INFORMATION
  Report Type: Spontaneous
  Country: US (occurrence: US)
  Receive Date: 20170524
  Receipt Date: 20170524
  Transmission Date: 20170830
  Serious: Yes (Hospitalization)
  Sender: FDA-Public Use
  Company Number: None

PATIENT
  Age: 35 Year
  Sex: Male

DRUGS (1)
  1. REVLIMID [Suspect]
     Active Substance: LENALIDOMIDE
     Indication: PLASMA CELL MYELOMA
     Dosage: DAILY X21D, 7D OFF
     Route: 048
     Dates: start: 20130515

REACTIONS (2)
  - Rectal haemorrhage [None]
  - Colitis ischaemic [None]

NARRATIVE: CASE EVENT DATE: 20130526
